FAERS Safety Report 7607283-5 (Version None)
Quarter: 2011Q3

REPORT INFORMATION
  Report Type: 
  Country: None (occurrence: None)
  Receive Date: 20110712
  Receipt Date: 20110712
  Transmission Date: 20111222
  Serious: No
  Sender: FDA-Public Use
  Company Number: None

PATIENT
  Age: 39 Year
  Sex: Male
  Weight: 83.9154 kg

DRUGS (1)
  1. PROPECIA [Suspect]
     Indication: ALOPECIA
     Dosage: 1NG DAILY PO
     Route: 048
     Dates: start: 20021010, end: 20030730

REACTIONS (6)
  - LIBIDO DECREASED [None]
  - ANORGASMIA [None]
  - DISTURBANCE IN ATTENTION [None]
  - ARTHRALGIA [None]
  - ERECTILE DYSFUNCTION [None]
  - EJACULATION FAILURE [None]
